FAERS Safety Report 5964887-3 (Version None)
Quarter: 2008Q4

REPORT INFORMATION
  Report Type: 
  Country: None (occurrence: None)
  Receive Date: 20081124
  Receipt Date: 20081124
  Transmission Date: 20090506
  Serious: Yes (Hospitalization)
  Sender: FDA-Public Use
  Company Number: None

PATIENT
  Age: 30 Year
  Sex: Female
  Weight: 44.9061 kg

DRUGS (2)
  1. CHANTIX [Suspect]
     Indication: SMOKING CESSATION THERAPY
     Dosage: 0.5 MG 1/DAY PO
     Route: 048
     Dates: start: 20081029, end: 20081114
  2. CHANTIX [Suspect]
     Dosage: 1.0 MG 1/DAY PO
     Route: 048

REACTIONS (3)
  - ALCOHOL ABUSE [None]
  - DEPRESSION [None]
  - SUICIDAL IDEATION [None]
